FAERS Safety Report 25984965 (Version 2)
Quarter: 2025Q4

REPORT INFORMATION
  Report Type: Spontaneous
  Country: EU (occurrence: EU)
  Receive Date: 20251031
  Receipt Date: 20251113
  Transmission Date: 20260117
  Serious: Yes (Disabling, Other)
  Sender: MERCK SHARP & DOHME LLC
  Company Number: EU-009507513-2335332

PATIENT
  Age: 58 Year
  Sex: Male

DRUGS (9)
  1. PEMBROLIZUMAB [Suspect]
     Active Substance: PEMBROLIZUMAB
     Indication: Laryngeal cancer metastatic
     Route: 042
     Dates: start: 20240315, end: 2024
  2. PEMBROLIZUMAB [Suspect]
     Active Substance: PEMBROLIZUMAB
     Indication: Laryngeal cancer metastatic
     Dosage: 6TH CYCLE
     Route: 042
     Dates: start: 20240704, end: 20240704
  3. PEMBROLIZUMAB [Suspect]
     Active Substance: PEMBROLIZUMAB
     Indication: Laryngeal cancer metastatic
     Dosage: 7TH CYCLE
     Route: 042
     Dates: start: 20240724, end: 20240724
  4. PEMBROLIZUMAB [Suspect]
     Active Substance: PEMBROLIZUMAB
     Indication: Laryngeal cancer metastatic
     Route: 042
     Dates: start: 202408, end: 2025
  5. PEMBROLIZUMAB [Suspect]
     Active Substance: PEMBROLIZUMAB
     Indication: Laryngeal cancer metastatic
     Dosage: 10TH CYCLE (FOLLOWING 6 CYCLES OF IMMUNOCHEMOTHERAPY WITH PEMBROLIZUMAB + PF))
     Route: 042
     Dates: start: 20250221, end: 20250221
  6. PEMBROLIZUMAB [Suspect]
     Active Substance: PEMBROLIZUMAB
     Indication: Laryngeal cancer metastatic
     Dosage: 12TH CYCLE (FOLLOWING 6 CYCLES OF IMMUNOCHEMOTHERAPY WITH PEMBROLIZUMAB + PF))
     Route: 042
     Dates: start: 20250407, end: 20250407
  7. CISPLATIN [Suspect]
     Active Substance: CISPLATIN
     Indication: Laryngeal cancer metastatic
     Dosage: 100 MG/M2 ON DAY 1 WITH CYCLES EVERY 21 DAYS
     Route: 065
     Dates: start: 20240315, end: 20240704
  8. FLUOROURACIL [Suspect]
     Active Substance: FLUOROURACIL
     Indication: Laryngeal cancer metastatic
     Dosage: TIME INTERVAL: CYCLICAL: 1000 MG/M2 ON DAYS 1-4 OF THE CYCLE, WITH CYCLES EVERY 21 DAYS
     Route: 065
     Dates: start: 20240315, end: 20240704
  9. UNSPECIFIED INGREDIENT [Concomitant]
     Active Substance: UNSPECIFIED INGREDIENT
     Indication: Pain
     Dosage: 2-3 TIMES DAILY

REACTIONS (18)
  - Gastrostomy [Unknown]
  - Laryngeal disorder [Unknown]
  - Lymphadenopathy [Unknown]
  - Soft tissue disorder [Unknown]
  - Radiation fibrosis [Unknown]
  - Necrotic lymphadenopathy [Unknown]
  - Tracheal oedema [Unknown]
  - Localised oedema [Unknown]
  - Tumour invasion [Unknown]
  - Malignant neoplasm progression [Not Recovered/Not Resolved]
  - Hepatic cyst [Unknown]
  - Inappropriate schedule of product administration [Unknown]
  - Radiotherapy [Recovered/Resolved]
  - Radiation skin injury [Unknown]
  - Radiation mucositis [Unknown]
  - Pharyngeal oedema [Unknown]
  - Laryngeal oedema [Unknown]
  - Pharyngeal disorder [Unknown]

NARRATIVE: CASE EVENT DATE: 20240101
